FAERS Safety Report 9638156 (Version 3)
Quarter: 2013Q4

REPORT INFORMATION
  Report Type: Spontaneous
  Country: US (occurrence: US)
  Receive Date: 20131022
  Receipt Date: 20131212
  Transmission Date: 20140711
  Serious: No
  Sender: FDA-Public Use
  Company Number: US-PFIZER INC-2013300460

PATIENT
  Age: 55 Year
  Sex: Male
  Weight: 100 kg

DRUGS (1)
  1. ZOLOFT [Suspect]
     Indication: DEPRESSION
     Dosage: 100 MG, DAILY
     Dates: start: 20130802, end: 2013

REACTIONS (9)
  - Aggression [Unknown]
  - Anger [Unknown]
  - Abnormal behaviour [Unknown]
  - Insomnia [Unknown]
  - Irritability [Unknown]
  - Feeling abnormal [Unknown]
  - Memory impairment [Unknown]
  - Logorrhoea [Unknown]
  - Speech disorder [Unknown]
